FAERS Safety Report 20344656 (Version 1)
Quarter: 2022Q1

REPORT INFORMATION
  Report Type: Spontaneous
  Country: CA (occurrence: CA)
  Receive Date: 20220118
  Receipt Date: 20220118
  Transmission Date: 20220423
  Serious: Yes (Other)
  Sender: FDA-Public Use
  Company Number: None

PATIENT
  Age: 66 Year
  Sex: Female

DRUGS (1)
  1. HYDROXYCHLOROQUINE [Suspect]
     Active Substance: HYDROXYCHLOROQUINE
     Indication: Osteoarthritis
     Dosage: 1 EVERY 1 DAYS
     Route: 048

REACTIONS (5)
  - Burning sensation [Unknown]
  - Dyspepsia [Unknown]
  - Fatigue [Unknown]
  - Influenza like illness [Unknown]
  - Pain [Unknown]
